FAERS Safety Report 8250463-9 (Version None)
Quarter: 2012Q2

REPORT INFORMATION
  Report Type: 
  Country: None (occurrence: None)
  Receive Date: 20120402
  Receipt Date: 20120402
  Transmission Date: 20120825
  Serious: Yes (Hospitalization)
  Sender: FDA-Public Use
  Company Number: None

PATIENT
  Age: 61 Year
  Sex: Male

DRUGS (1)
  1. DOXYCYCLINE [Suspect]
     Dosage: 100.0 MG
     Route: 048
     Dates: start: 20120211, end: 20120212

REACTIONS (4)
  - SCRATCH [None]
  - HAEMORRHAGE [None]
  - PRURITUS [None]
  - RASH [None]
